FAERS Safety Report 25940156 (Version 1)
Quarter: 2025Q4

REPORT INFORMATION
  Report Type: Spontaneous
  Country: EU (occurrence: EU)
  Receive Date: 20251020
  Receipt Date: 20251020
  Transmission Date: 20260118
  Serious: Yes (Other)
  Sender: SANDOZ
  Company Number: EU-SANDOZ-SDZ2025PL076288

PATIENT
  Age: 74 Year
  Sex: Male
  Weight: 45 kg

DRUGS (6)
  1. LEVOFLOXACIN [Suspect]
     Active Substance: LEVOFLOXACIN
     Indication: Pneumonia
     Dosage: 500 MG
     Route: 042
     Dates: start: 20251008, end: 20251009
  2. CEFTRIAXONE SODIUM [Concomitant]
     Active Substance: CEFTRIAXONE SODIUM
     Indication: Pneumonia
     Dosage: 2G,1-0-0
     Route: 042
     Dates: start: 20250927, end: 20251010
  3. ENOXAPARIN SODIUM [Concomitant]
     Active Substance: ENOXAPARIN SODIUM
     Indication: Pneumonia
     Dosage: 40MG,1-0-0
     Route: 058
     Dates: start: 20250928
  4. DEXTROSE [Concomitant]
     Active Substance: DEXTROSE MONOHYDRATE
     Indication: Pneumonia
     Dosage: 5% 500ML,1-0-1
     Route: 042
     Dates: start: 20250927
  5. POTASSIUM CHLORIDE [Concomitant]
     Active Substance: POTASSIUM CHLORIDE
     Indication: Hypernatraemia
     Dosage: EFFERVESCENSS,1-0 -0
     Route: 048
     Dates: start: 20250929
  6. ACETAMINOPHEN [Concomitant]
     Active Substance: ACETAMINOPHEN
     Indication: Pain
     Dosage: 500MG,1-1-1-1
     Route: 048
     Dates: start: 20251002, end: 20251010

REACTIONS (4)
  - Tachypnoea [Recovering/Resolving]
  - Respiratory distress [Recovering/Resolving]
  - Lip swelling [Recovering/Resolving]
  - Urticaria [Recovering/Resolving]

NARRATIVE: CASE EVENT DATE: 20251009
